FAERS Safety Report 6945231-1 (Version None)
Quarter: 2010Q3

REPORT INFORMATION
  Report Type: 
  Country: None (occurrence: None)
  Receive Date: 20100827
  Receipt Date: 20100616
  Transmission Date: 20110219
  Serious: No
  Sender: FDA-Public Use
  Company Number: US-KINGPHARMUSA00001-K201000763

PATIENT
  Age: 60 Year
  Sex: Male

DRUGS (1)
  1. FLECTOR [Suspect]
     Dosage: UNK
     Route: 061

REACTIONS (3)
  - APPLICATION SITE ERYTHEMA [None]
  - HERPES ZOSTER [None]
  - SKIN LESION [None]
